FAERS Safety Report 26121255 (Version 1)
Quarter: 2025Q4

REPORT INFORMATION
  Report Type: Spontaneous
  Country: US (occurrence: None)
  Receive Date: 20251204
  Receipt Date: 20251204
  Transmission Date: 20260118
  Serious: No
  Sender: FDA-CTU
  Company Number: None

PATIENT
  Age: 41 Year
  Sex: Male
  Weight: 98 kg

DRUGS (1)
  1. SOMATROPIN [Suspect]
     Active Substance: SOMATROPIN
     Indication: Growth hormone deficiency
     Dosage: FREQUENCY : DAILY;?
     Route: 058
     Dates: start: 20231208, end: 20250212

REACTIONS (3)
  - Product quality issue [None]
  - Product name confusion [None]
  - Wrong technique in device usage process [None]

NARRATIVE: CASE EVENT DATE: 20250529
